FAERS Safety Report 4875300-1 (Version None)
Quarter: 2006Q1

REPORT INFORMATION
  Report Type: 
  Country: None (occurrence: None)
  Receive Date: 20060109
  Receipt Date: 20050426
  Transmission Date: 20060701
  Serious: Yes (Hospitalization)
  Sender: FDA-Public Use
  Company Number: US-MERCK-0504USA04622

PATIENT
  Sex: Female
  Weight: 55 kg

DRUGS (1)
  1. VIOXX [Suspect]
     Indication: ARTHRITIS
     Route: 048
     Dates: start: 19990101, end: 20010801

REACTIONS (4)
  - BACK DISORDER [None]
  - CARDIOVASCULAR DISORDER [None]
  - STENT PLACEMENT [None]
  - THROMBOSIS [None]
